FAERS Safety Report 10201203 (Version 1)
Quarter: 2014Q2

REPORT INFORMATION
  Report Type: Spontaneous
  Country: FR (occurrence: FR)
  Receive Date: 20140528
  Receipt Date: 20140528
  Transmission Date: 20141212
  Serious: Yes (Other)
  Sender: FDA-Public Use
  Company Number: FR-009507513-1405FRA011358

PATIENT
  Age: 55 Year
  Sex: Male

DRUGS (2)
  1. FOSAMAX 10MG, COMPRIME [Suspect]
     Indication: OSTEOPOROSIS
     Dosage: 10 MG, QW
     Route: 048
     Dates: start: 2011, end: 20131109
  2. TILCOTIL [Suspect]
     Dosage: UNK
     Route: 048
     Dates: start: 20131103, end: 20131109

REACTIONS (1)
  - Pancreatitis acute [Recovered/Resolved]
